FAERS Safety Report 9058623 (Version 1)
Quarter: 2013Q1

REPORT INFORMATION
  Report Type: Report from Study
  Country: CA (occurrence: CA)
  Receive Date: 20130211
  Receipt Date: 20130211
  Transmission Date: 20140127
  Serious: Yes (Other)
  Sender: FDA-Public Use
  Company Number: CA-JNJFOC-20130200653

PATIENT
  Age: 55 None
  Sex: Female
  Weight: 79.3 kg

DRUGS (2)
  1. REMICADE [Suspect]
     Indication: CROHN^S DISEASE
     Route: 042
  2. IMURAN [Concomitant]
     Route: 048

REACTIONS (2)
  - Herpes zoster [Recovered/Resolved]
  - Lacrimation increased [Recovered/Resolved]
